FAERS Safety Report 16015982 (Version 1)
Quarter: 2019Q1

REPORT INFORMATION
  Report Type: Spontaneous
  Country: GB (occurrence: GB)
  Receive Date: 20190228
  Receipt Date: 20190228
  Transmission Date: 20190418
  Serious: Yes (Other)
  Sender: FDA-Public Use
  Company Number: GB-ACCORD-109286

PATIENT
  Age: 41 Year
  Sex: Female
  Weight: 57 kg

DRUGS (6)
  1. METFORMIN [Concomitant]
     Active Substance: METFORMIN HYDROCHLORIDE
     Dates: start: 20071026
  2. FEXOFENADINE/FEXOFENADINE HYDROCHLORIDE [Concomitant]
     Dates: start: 20180607, end: 20180707
  3. RAMIPRIL. [Suspect]
     Active Substance: RAMIPRIL
     Indication: PRODUCT USED FOR UNKNOWN INDICATION
     Dates: start: 20180802
  4. CETIRIZINE [Concomitant]
     Active Substance: CETIRIZINE HYDROCHLORIDE
     Dates: start: 20180816
  5. LEVOTHYROXINE. [Concomitant]
     Active Substance: LEVOTHYROXINE
     Dosage: EACH MORNING
     Dates: start: 20160701
  6. DULOXETINE. [Concomitant]
     Active Substance: DULOXETINE
     Dates: start: 20180815

REACTIONS (4)
  - Lip ulceration [Unknown]
  - Lip swelling [Unknown]
  - Hypersensitivity [Unknown]
  - Lip blister [Unknown]
